FAERS Safety Report 19260525 (Version 3)
Quarter: 2021Q2

REPORT INFORMATION
  Report Type: Spontaneous
  Country: US (occurrence: RU)
  Receive Date: 20210514
  Receipt Date: 20210629
  Transmission Date: 20210717
  Serious: Yes (Death, Disabling, Other)
  Sender: FDA-Public Use
  Company Number: RU-BIOMARINAP-RU-2021-136531

PATIENT
  Age: 18 Year
  Sex: Female
  Weight: 14 kg

DRUGS (2)
  1. ALDURAZYME [Suspect]
     Active Substance: LARONIDASE
     Dosage: 3 DOSAGE FORM, QW
     Route: 042
     Dates: start: 2020, end: 202104
  2. ALDURAZYME [Suspect]
     Active Substance: LARONIDASE
     Indication: MUCOPOLYSACCHARIDOSIS I
     Dosage: 100 INTERNATIONAL UNIT/KILOGRAM, QW
     Route: 042
     Dates: start: 2009

REACTIONS (3)
  - Cardiopulmonary failure [Fatal]
  - Disability [Unknown]
  - Multi-organ disorder [Unknown]
